FAERS Safety Report 10888665 (Version 3)
Quarter: 2015Q4

REPORT INFORMATION
  Report Type: Report from Study
  Country: CA (occurrence: CA)
  Receive Date: 20150305
  Receipt Date: 20151012
  Transmission Date: 20160304
  Serious: Yes (Other)
  Sender: FDA-Public Use
  Company Number: CA-JNJFOC-20150119842

PATIENT
  Age: 68 Year
  Sex: Male
  Weight: 72 kg

DRUGS (3)
  1. REMICADE [Suspect]
     Active Substance: INFLIXIMAB
     Indication: PITYRIASIS RUBRA PILARIS
     Route: 042
     Dates: start: 20150114, end: 20150326
  2. REMICADE [Suspect]
     Active Substance: INFLIXIMAB
     Indication: PITYRIASIS RUBRA PILARIS
     Dosage: 400 MG PER INDUCTION INTRAVENOUS (IV). APPROX. NO. OF INFUSIONS RECEIVED 3.
     Route: 042
     Dates: start: 20150114, end: 20150410
  3. METHOTREXATE [Concomitant]
     Active Substance: METHOTREXATE
     Route: 065

REACTIONS (6)
  - Drug ineffective [Unknown]
  - Product use issue [Unknown]
  - Eczema herpeticum [Recovered/Resolved]
  - Sepsis [Not Recovered/Not Resolved]
  - Skin infection [Not Recovered/Not Resolved]
  - Lymphoma [Not Recovered/Not Resolved]

NARRATIVE: CASE EVENT DATE: 20150114
